FAERS Safety Report 6640470-1 (Version None)
Quarter: 2010Q1

REPORT INFORMATION
  Report Type: 
  Country: None (occurrence: None)
  Receive Date: 20100318
  Receipt Date: 20100308
  Transmission Date: 20100710
  Serious: Yes (Other)
  Sender: FDA-Public Use
  Company Number: DE-PFIZER INC-2010029478

PATIENT
  Age: 73 Year
  Sex: Female

DRUGS (2)
  1. XALATAN [Suspect]
     Indication: GLAUCOMA
     Dosage: 1X EVERY EVENING
     Route: 047
  2. TRUSOPT [Concomitant]
     Indication: GLAUCOMA
     Dosage: UNK DROPS TWICE DAILY
     Route: 047
     Dates: start: 19890101

REACTIONS (3)
  - INTRAOCULAR PRESSURE INCREASED [None]
  - OPTIC NERVE DISORDER [None]
  - VISUAL FIELD DEFECT [None]
